FAERS Safety Report 8095337-1 (Version None)
Quarter: 2012Q1

REPORT INFORMATION
  Report Type: 
  Country: None (occurrence: None)
  Receive Date: 20120131
  Receipt Date: 20120116
  Transmission Date: 20120608
  Serious: Yes (Hospitalization)
  Sender: FDA-Public Use
  Company Number: US-WATSON-2012-00873

PATIENT
  Age: 44 Year
  Sex: Female

DRUGS (2)
  1. MILNACIPRAN (UNKNOWN) [Suspect]
     Indication: PAIN
     Dosage: 50 MG, BID
     Dates: start: 20090601
  2. PREDNISONE [Suspect]
     Indication: PAIN
     Dosage: 5 MG, DAILY
     Dates: start: 20080701

REACTIONS (5)
  - CARDIOMYOPATHY [None]
  - TACHYCARDIA [None]
  - HYPERTENSION [None]
  - FLUID RETENTION [None]
  - PHOTOSENSITIVITY REACTION [None]
